FAERS Safety Report 25869130 (Version 1)
Quarter: 2025Q4

REPORT INFORMATION
  Report Type: Spontaneous
  Country: US (occurrence: US)
  Receive Date: 20251001
  Receipt Date: 20251001
  Transmission Date: 20260118
  Serious: Yes (Hospitalization)
  Sender: AUROBINDO
  Company Number: US-AUROBINDO-AUR-APL-2025-050435

PATIENT
  Age: 30 Year
  Sex: Female

DRUGS (28)
  1. AMLODIPINE [Suspect]
     Active Substance: AMLODIPINE BESYLATE
     Indication: Hypertension
     Dosage: UNK
     Route: 065
  2. AMLODIPINE [Suspect]
     Active Substance: AMLODIPINE BESYLATE
     Indication: Tachycardia
  3. METOPROLOL [Suspect]
     Active Substance: METOPROLOL
     Indication: Hypertension
     Dosage: UNK
     Route: 065
  4. METOPROLOL [Suspect]
     Active Substance: METOPROLOL
     Indication: Tachycardia
  5. HALOPERIDOL [Suspect]
     Active Substance: HALOPERIDOL
     Indication: Agitation
     Dosage: 1 MILLIGRAM
     Route: 042
  6. HALOPERIDOL [Suspect]
     Active Substance: HALOPERIDOL
     Indication: Hallucination
  7. QUETIAPINE [Suspect]
     Active Substance: QUETIAPINE
     Indication: Agitation
     Dosage: 25 MILLIGRAM, TWO TIMES A DAY
     Route: 065
  8. QUETIAPINE [Suspect]
     Active Substance: QUETIAPINE
     Indication: Hallucination
  9. LORAZEPAM [Suspect]
     Active Substance: LORAZEPAM
     Indication: Autonomic nervous system imbalance
     Dosage: 4 2-MG AND 3 1-MG
     Route: 065
  10. LORAZEPAM [Suspect]
     Active Substance: LORAZEPAM
     Indication: Catatonia
     Dosage: 2 MILLIGRAM, TWO TIMES A DAY
     Route: 065
  11. LORAZEPAM [Suspect]
     Active Substance: LORAZEPAM
     Dosage: 2 MG EVERY 4 HOURS
     Route: 065
  12. LORAZEPAM [Suspect]
     Active Substance: LORAZEPAM
     Dosage: 2 MG EVERY 2 HOURS
     Route: 065
  13. LORAZEPAM [Suspect]
     Active Substance: LORAZEPAM
     Dosage: 30 MG IN 24 HOURS
     Route: 065
  14. LORAZEPAM [Suspect]
     Active Substance: LORAZEPAM
     Dosage: 2 MG EVERY 2 HOURS
     Route: 065
  15. ZIPRASIDONE HYDROCHLORIDE [Suspect]
     Active Substance: ZIPRASIDONE HYDROCHLORIDE
     Indication: Agitation
     Dosage: 10 MILLIGRAM
     Route: 065
  16. ZIPRASIDONE HYDROCHLORIDE [Suspect]
     Active Substance: ZIPRASIDONE HYDROCHLORIDE
     Indication: Hallucination
  17. AMANTADINE [Suspect]
     Active Substance: AMANTADINE
     Indication: Catatonia
     Dosage: 200 MILLIGRAM, TWO TIMES A DAY
     Route: 065
  18. METHYLPREDNISOLONE [Concomitant]
     Active Substance: METHYLPREDNISOLONE
     Indication: Catatonia
     Dosage: UNK
     Route: 042
  19. Immunoglobulin [Concomitant]
     Indication: Catatonia
     Dosage: UNK
     Route: 042
  20. RITUXIMAB [Concomitant]
     Active Substance: RITUXIMAB
     Indication: Catatonia
     Dosage: 1000 MILLIGRAM
     Route: 065
  21. DROPERIDOL [Concomitant]
     Active Substance: DROPERIDOL
     Indication: Product used for unknown indication
     Dosage: 1.25 MILLIGRAM
     Route: 065
  22. LACTATED RINGERS SOLUTION [Concomitant]
     Active Substance: CALCIUM CHLORIDE\POTASSIUM CHLORIDE\SODIUM CHLORIDE\SODIUM LACTATE
     Indication: Product used for unknown indication
     Dosage: 2 LITERS
     Route: 065
  23. CEFTRIAXONE [Concomitant]
     Active Substance: CEFTRIAXONE
     Indication: Infection
     Dosage: 1 GRAM
     Route: 065
  24. PREDNISONE [Concomitant]
     Active Substance: PREDNISONE
     Indication: Catatonia
     Dosage: 60 MILLIGRAM, DAILY
     Route: 048
  25. DIVALPROEX SODIUM [Concomitant]
     Active Substance: DIVALPROEX SODIUM
     Indication: Product used for unknown indication
     Dosage: UNK
     Route: 065
  26. CARVEDILOL [Concomitant]
     Active Substance: CARVEDILOL
     Indication: Product used for unknown indication
     Dosage: UNK
     Route: 065
  27. VITAMIN D [Concomitant]
     Active Substance: VITAMIN D NOS
     Indication: Product used for unknown indication
     Dosage: UNK
     Route: 065
  28. SULFAMETHOXAZOLE\TRIMETHOPRIM [Concomitant]
     Active Substance: SULFAMETHOXAZOLE\TRIMETHOPRIM
     Indication: Product used for unknown indication
     Dosage: UNK
     Route: 065

REACTIONS (2)
  - Drug ineffective [Unknown]
  - Off label use [Unknown]
